FAERS Safety Report 6918815-4 (Version None)
Quarter: 2010Q3

REPORT INFORMATION
  Report Type: 
  Country: None (occurrence: None)
  Receive Date: 20100811
  Receipt Date: 20100803
  Transmission Date: 20110219
  Serious: Yes (Hospitalization)
  Sender: FDA-Public Use
  Company Number: IT-JNJFOC-20100800812

PATIENT
  Sex: Male

DRUGS (8)
  1. LEVOFLOXACIN [Suspect]
     Indication: SKIN ULCER
     Route: 048
  2. WARFARIN SODIUM [Suspect]
     Indication: ATRIAL FIBRILLATION
     Route: 048
  3. IBRUPROFEN [Suspect]
     Indication: SKIN ULCER
     Dosage: 2 UNITS
     Route: 048
  4. FUROSEMIDE [Concomitant]
     Route: 065
  5. LANSOPRAZOLE [Concomitant]
     Route: 065
  6. CARVEDILOL [Concomitant]
     Route: 065
  7. INSULIN [Concomitant]
     Route: 065
  8. RAMIPRIL [Concomitant]
     Route: 065

REACTIONS (2)
  - COAGULATION FACTOR DECREASED [None]
  - GINGIVAL BLEEDING [None]
